FAERS Safety Report 13623552 (Version 3)
Quarter: 2019Q2

REPORT INFORMATION
  Report Type: Spontaneous
  Country: US (occurrence: US)
  Receive Date: 20170607
  Receipt Date: 20190617
  Transmission Date: 20190711
  Serious: Yes (Death, Hospitalization)
  Sender: FDA-Public Use
  Company Number: US-B.I. PHARMACEUTICALS,INC./RIDGEFIELD-2017-BI-031681

PATIENT
  Age: 83 Year
  Sex: Male

DRUGS (31)
  1. ACETAMINOPHEN WITH CODEINE (TYLENOL #3) [Concomitant]
     Indication: PAIN
     Dosage: DOSE: 1-2 TAB; MAX APAP 4 GM/24HRS
     Route: 048
  2. MILK OF MAGNESIA CONCENTRATE [Concomitant]
     Indication: GASTRIC PH DECREASED
  3. SPIRIVA [Concomitant]
     Active Substance: TIOTROPIUM BROMIDE MONOHYDRATE
     Indication: PRODUCT USED FOR UNKNOWN INDICATION
     Dosage: DOSE: 1 MULTIDOSE INH
     Route: 055
  4. SPIRIVA [Concomitant]
     Active Substance: TIOTROPIUM BROMIDE MONOHYDRATE
     Dosage: 2 PUFFS; 0 MULTIDOSE INH
     Route: 055
  5. SOLUMEDROL A-METHAPRED [Concomitant]
     Indication: PRODUCT USED FOR UNKNOWN INDICATION
     Route: 042
  6. TYLENOL [Concomitant]
     Active Substance: ACETAMINOPHEN
     Indication: PAIN
     Dosage: DOSE: 325-650 MG; NO MORE THAN 4 GM APAP/24 HRS
     Route: 048
  7. VENTOLIN HFA INHALER [Concomitant]
     Indication: WHEEZING
     Dosage: 0 MULTIDOSE INH; USE WITH SPACER, EACH PUFF 5 MINUTES APART; DOSE: 2 PUFFS (90MCG ALBUTEROL/PUFF)
     Route: 055
  8. ADVAIR HFA [Concomitant]
     Active Substance: FLUTICASONE PROPIONATE\SALMETEROL XINAFOATE
     Dosage: DOSE: 1 PUFF; 0 MULTIDOSE INH BIDRT
     Route: 055
  9. REGLAN [Concomitant]
     Active Substance: METOCLOPRAMIDE HYDROCHLORIDE
     Indication: NAUSEA
     Route: 042
  10. PROTONIX [Concomitant]
     Active Substance: PANTOPRAZOLE SODIUM
     Indication: PRODUCT USED FOR UNKNOWN INDICATION
     Dosage: NORMAL SALINE 10 ML; FINAL CONC: 4 MG/ML (GIVE OVER AT LEAST 2 MINUTES)
     Route: 065
  11. REGLAN [Concomitant]
     Active Substance: METOCLOPRAMIDE HYDROCHLORIDE
     Indication: VOMITING
  12. MORPHINE [Concomitant]
     Active Substance: MORPHINE
     Indication: PAIN
     Dosage: 2 MG SLOW IVP OVER 2-4 MIN LOADING LOSE; MAY GIVE 1 MG EVERY 8 MIN; MAX DOSE OF 15 MG WITHIN 2HR
     Route: 042
  13. LANOXIN [Concomitant]
     Active Substance: DIGOXIN
     Indication: PRODUCT USED FOR UNKNOWN INDICATION
     Route: 048
  14. COUMADIN [Concomitant]
     Active Substance: WARFARIN SODIUM
     Indication: PRODUCT USED FOR UNKNOWN INDICATION
     Dosage: HAS BEEN TAKING DAILY FOR THE LAST FOUR DAYS
     Route: 048
  15. DUONEB [Concomitant]
     Active Substance: ALBUTEROL SULFATE\IPRATROPIUM BROMIDE
     Indication: PRODUCT USED FOR UNKNOWN INDICATION
     Route: 055
  16. SOLUMEDROL A-METHAPRED [Concomitant]
     Route: 042
  17. ACETAMINOPHEN WITH CODEINE (TYLENOL #3) [Concomitant]
     Indication: ORAL PAIN
  18. TUMS [Concomitant]
     Active Substance: CALCIUM CARBONATE
     Indication: DYSPEPSIA
     Dosage: DOSE: 500-1000 MG
     Route: 048
  19. ZOFRAN [Concomitant]
     Active Substance: ONDANSETRON HYDROCHLORIDE
     Indication: VOMITING
     Route: 042
  20. PRADAXA [Suspect]
     Active Substance: DABIGATRAN ETEXILATE MESYLATE
     Indication: ATRIAL FIBRILLATION
     Route: 048
     Dates: start: 20110707
  21. DELTASONE [Concomitant]
     Active Substance: PREDNISONE
     Indication: PRODUCT USED FOR UNKNOWN INDICATION
     Route: 048
  22. TRANDATE: NORMODYNE [Concomitant]
     Indication: BLOOD PRESSURE SYSTOLIC INCREASED
     Dosage: DOSE: 10-20 MG
     Route: 042
  23. MILK OF MAGNESIA CONCENTRATE [Concomitant]
     Indication: CONSTIPATION
     Dosage: 10 ML CONC = 30 ML REGULAR MOM
     Route: 048
  24. PHENERGAN-PROMETHAZINE [Concomitant]
     Indication: NAUSEA
     Dosage: DOSE: 12.5-25 MG; MUST BE FURTHER DILUTED FOR IV USE
     Route: 042
  25. ADVAIR HFA [Concomitant]
     Active Substance: FLUTICASONE PROPIONATE\SALMETEROL XINAFOATE
     Indication: PRODUCT USED FOR UNKNOWN INDICATION
     Dosage: 250-50
     Route: 055
  26. KEFZOL: ANCEF [Concomitant]
     Indication: PRODUCT USED FOR UNKNOWN INDICATION
     Dosage: SODIUM CHLORIDE 0.9% ADVB (NACL 0.9% ADV)
     Route: 065
  27. MILK OF MAGNESIA CONCENTRATE [Concomitant]
     Indication: GASTROOESOPHAGEAL REFLUX DISEASE
     Dosage: DOSE: 5-10 ML; 10 ML CONC = 30 ML REGULAR MOM
     Route: 048
  28. LANOXIN [Concomitant]
     Active Substance: DIGOXIN
     Dosage: HOLD UNTIL DIG LEVEL IS BACK
     Route: 042
  29. LACTATED RINGERS SOLUTION [Concomitant]
     Active Substance: CALCIUM CHLORIDE\POTASSIUM CHLORIDE\SODIUM CHLORIDE\SODIUM LACTATE
     Indication: PRODUCT USED FOR UNKNOWN INDICATION
     Route: 042
  30. 3% SODIUM CHLORIDE HYPERTONIC [Concomitant]
     Indication: PRODUCT USED FOR UNKNOWN INDICATION
     Route: 042
  31. PHENERGAN-PROMETHAZINE [Concomitant]
     Indication: VOMITING
     Dosage: DOSE: 12.5-25 MG; MUST BE FURTHER DILUTED FOR IV USE
     Route: 030

REACTIONS (3)
  - Subarachnoid haemorrhage [Fatal]
  - Respiratory failure [Fatal]
  - Chronic obstructive pulmonary disease [Fatal]

NARRATIVE: CASE EVENT DATE: 20120105
